FAERS Safety Report 6087957-0 (Version None)
Quarter: 2009Q1

REPORT INFORMATION
  Report Type: 
  Country: None (occurrence: None)
  Receive Date: 20090213
  Receipt Date: 20090209
  Transmission Date: 20090719
  Serious: Yes (Other)
  Sender: FDA-Public Use
  Company Number: A0767625A

PATIENT
  Age: 51 Year
  Sex: Male

DRUGS (2)
  1. ASPIRIN + CAFFEINE + SALICYLAMIDE (FORMULATION UNKNOWN) (ASPIRIN+CAFFE [Suspect]
     Dosage: ORAL
     Route: 048
  2. ASPIRIN + CAFFEINE + SALICYLAMIDE (FORMULATION UKNOWN) (ASPIRIN+CAFFEI [Suspect]

REACTIONS (7)
  - ABDOMINAL DISCOMFORT [None]
  - ABDOMINAL PAIN UPPER [None]
  - CONDITION AGGRAVATED [None]
  - DRUG INEFFECTIVE [None]
  - GASTRIC ULCER [None]
  - HAEMATOCHEZIA [None]
  - HAEMOPTYSIS [None]
